FAERS Safety Report 6667323-7 (Version None)
Quarter: 2010Q2

REPORT INFORMATION
  Report Type: 
  Country: None (occurrence: None)
  Receive Date: 20100405
  Receipt Date: 20100330
  Transmission Date: 20101027
  Serious: Yes (Death)
  Sender: FDA-Public Use
  Company Number: FR-ELI_LILLY_AND_COMPANY-FR201003008096

PATIENT
  Sex: Male

DRUGS (2)
  1. GEMZAR [Suspect]
     Indication: PANCREATIC CARCINOMA
     Dosage: 850 MG/M2, UNKNOWN
     Route: 042
     Dates: start: 20090827, end: 20100218
  2. OXALIPLATIN [Concomitant]
     Indication: PANCREATIC CARCINOMA
     Dosage: UNK, UNKNOWN
     Dates: start: 20090827

REACTIONS (3)
  - DYSPNOEA [None]
  - SUDDEN DEATH [None]
  - VASCULITIS [None]
